FAERS Safety Report 6732775-0 (Version None)
Quarter: 2010Q2

REPORT INFORMATION
  Report Type: 
  Country: None (occurrence: None)
  Receive Date: 20100519
  Receipt Date: 20100509
  Transmission Date: 20101027
  Serious: Yes (Hospitalization, Other)
  Sender: FDA-Public Use
  Company Number: US-AMGEN-QUU411390

PATIENT
  Sex: Female

DRUGS (3)
  1. ENBREL [Suspect]
     Indication: PSORIATIC ARTHROPATHY
     Route: 058
     Dates: start: 20070401
  2. ENBREL [Suspect]
     Indication: PSORIASIS
  3. METHOTREXATE [Concomitant]

REACTIONS (8)
  - ALOPECIA [None]
  - DEPRESSION [None]
  - PALPITATIONS [None]
  - PSORIASIS [None]
  - PSORIATIC ARTHROPATHY [None]
  - URINARY TRACT INFECTION [None]
  - VASCULITIS [None]
  - VULVOVAGINAL MYCOTIC INFECTION [None]
